FAERS Safety Report 5325755-3 (Version None)
Quarter: 2007Q2

REPORT INFORMATION
  Report Type: 
  Country: None (occurrence: None)
  Receive Date: 20070509
  Receipt Date: 20070501
  Transmission Date: 20071010
  Serious: Yes (Hospitalization, Other)
  Sender: FDA-Public Use
  Company Number: 2004-07-1309

PATIENT
  Age: 43 Year
  Sex: Male
  Weight: 70.7611 kg

DRUGS (17)
  1. POSACONAZOLE [Suspect]
     Indication: FUNGAL INFECTION
     Dosage: 400 MG; BID; PO
     Route: 048
     Dates: start: 20021003, end: 20040805
  2. REGLAN (CON.) [Concomitant]
  3. SYNTHROID (CON.) [Concomitant]
  4. MEGACE (CON.) [Concomitant]
  5. LISINOPRIL (CON.) [Concomitant]
  6. PROTONIX (PANTOPRAZOLE SODIUM) (CON.) [Concomitant]
  7. PREDNISONE (CON.) [Concomitant]
  8. PHOS LO (CON.) [Concomitant]
  9. LANTUS (INSULIN GLARGINE) (CON.) [Concomitant]
  10. HUMALOG (INSULIN ANALOG) (CON.) [Concomitant]
  11. TRAZODONE (CON.) [Concomitant]
  12. ECONOPRED (CON.) [Concomitant]
  13. OFLOXACIN (CON.) [Concomitant]
  14. ELAVIL (CON.) [Concomitant]
  15. NORVASC (CON.) [Concomitant]
  16. EPOGEN (ERYTHROPOIETIN) (CON.) [Concomitant]
  17. IMODIUM (CON.) [Concomitant]

REACTIONS (15)
  - ATRIAL FIBRILLATION [None]
  - ATRIOVENTRICULAR BLOCK FIRST DEGREE [None]
  - BLOOD CULTURE POSITIVE [None]
  - BLOOD PRESSURE DECREASED [None]
  - CARDIAC FAILURE CONGESTIVE [None]
  - DIPHTHERIA [None]
  - FLUID OVERLOAD [None]
  - INFECTED SKIN ULCER [None]
  - LEFT ATRIAL DILATATION [None]
  - LEFT VENTRICULAR HYPERTROPHY [None]
  - MITRAL VALVE INCOMPETENCE [None]
  - MYOCARDIAL INFARCTION [None]
  - TACHYCARDIA [None]
  - VENTRICULAR TACHYCARDIA [None]
  - WEIGHT DECREASED [None]
